FAERS Safety Report 9190623 (Version 2)
Quarter: 2013Q2

REPORT INFORMATION
  Report Type: Spontaneous
  Country: US (occurrence: US)
  Receive Date: 20130326
  Receipt Date: 20130528
  Transmission Date: 20140414
  Serious: Yes (Hospitalization)
  Sender: FDA-Public Use
  Company Number: US-B.I. PHARMACEUTICALS,INC./RIDGEFIELD-2013-BI-07675BP

PATIENT
  Age: 54 Year
  Sex: Male
  Weight: 98.9 kg

DRUGS (9)
  1. TRADJENTA [Suspect]
     Indication: TYPE 2 DIABETES MELLITUS
     Dosage: 5 MG
     Route: 048
     Dates: start: 20120606, end: 20120611
  2. BASAL INSULIN [Concomitant]
  3. ACE INHIBITOR [Concomitant]
  4. AMLODIPINE [Concomitant]
     Indication: HYPERTENSION
     Dosage: 10 MG
     Route: 048
     Dates: start: 20110303
  5. HYDRALAZINE [Concomitant]
     Indication: HYPERTENSION
     Dosage: 150 MG
     Route: 048
     Dates: start: 20110303
  6. METOLAZONE [Concomitant]
     Indication: HYPERTENSION
     Dosage: 0.7143 MG
     Route: 048
     Dates: start: 20110303, end: 20120611
  7. GABAPENTIN [Concomitant]
     Indication: NEUROPATHY PERIPHERAL
     Route: 048
     Dates: start: 20110303, end: 201210
  8. LISINOPRIL [Concomitant]
     Indication: HYPERTENSION
     Dosage: 80 MG
     Route: 048
     Dates: start: 20110303
  9. LISINOPRIL [Concomitant]
     Dosage: 10 MG
     Route: 048

REACTIONS (1)
  - Renal failure acute [Recovered/Resolved]
